FAERS Safety Report 10566619 (Version 18)
Quarter: 2015Q2

REPORT INFORMATION
  Report Type: Report from Study
  Country: US (occurrence: US)
  Receive Date: 20141105
  Receipt Date: 20150408
  Transmission Date: 20150821
  Serious: Yes (Death, Life-Threatening, Hospitalization, Other)
  Sender: FDA-Public Use
  Company Number: US-MERCK-1310USA012317

PATIENT
  Age: 72 Year
  Sex: Male
  Weight: 71 kg

DRUGS (21)
  1. PEMBROLIZUMAB. [Suspect]
     Active Substance: PEMBROLIZUMAB
     Indication: TRANSITIONAL CELL CARCINOMA
     Dosage: 10 MG/KG, Q2W
     Route: 042
     Dates: start: 20130829, end: 20130926
  2. CALCIUM (UNSPECIFIED) (+) MAGNESIUM (UNSPECIFIED) (+) VITAMIN D (UNSPE [Concomitant]
     Indication: ROUTINE HEALTH MAINTENANCE
     Dosage: 1 TABLET, QD
     Route: 048
     Dates: start: 20120312
  3. ATENOLOL. [Concomitant]
     Active Substance: ATENOLOL
     Indication: HYPERTENSION
     Dosage: 25 MG, QD, FORMULATION: PILL
     Route: 048
     Dates: start: 20120323
  4. LORAZEPAM. [Concomitant]
     Active Substance: LORAZEPAM
     Indication: SLEEP DISORDER
  5. LIPITOR [Concomitant]
     Active Substance: ATORVASTATIN CALCIUM
     Indication: DYSLIPIDAEMIA
     Dosage: 20 MG, QD, FORMULATION: PILL
     Route: 048
     Dates: start: 20130822, end: 20131011
  6. SODIUM CHLORIDE. [Concomitant]
     Active Substance: SODIUM CHLORIDE
     Indication: FLUID REPLACEMENT
     Dosage: TOTAL DAILY DOSE: 200 ML, ONCE
     Route: 042
     Dates: start: 20131011, end: 20131011
  7. LORAZEPAM. [Concomitant]
     Active Substance: LORAZEPAM
     Indication: NAUSEA
     Dosage: 3 MG TOTAL DAILY DOSE, FREQUENCY: OTHER, FORMULATION PILL
     Route: 048
     Dates: start: 20120323, end: 20131127
  8. PAPAVERINE HYDROCHLORIDE (+) PHENTOLAMINE MESYLATE [Concomitant]
     Indication: ERECTILE DYSFUNCTION
     Dosage: 0.5 APPLICATION, FREQUENCY: OTHER
     Route: 050
     Dates: start: 20130411
  9. VITAFUSION MENS DAILY MULTIVITAMIN [Concomitant]
     Indication: ROUTINE HEALTH MAINTENANCE
     Dosage: 2 UNITS, QD
     Route: 048
     Dates: start: 20120323
  10. PEMBROLIZUMAB. [Suspect]
     Active Substance: PEMBROLIZUMAB
     Dosage: 10 MG/KG, Q2W
     Route: 042
     Dates: start: 20140814, end: 20140814
  11. PRINIVIL [Concomitant]
     Active Substance: LISINOPRIL
     Indication: HYPERTENSION
     Dosage: 40 MG, QD, FORMULATION: PILL
     Route: 048
     Dates: start: 20120323
  12. OMEGA-3 ACIDS [Concomitant]
     Active Substance: OMEGA-3 FATTY ACIDS
     Indication: ROUTINE HEALTH MAINTENANCE
     Dosage: 2 TABLET, QD
     Route: 048
     Dates: start: 20130323
  13. PEMBROLIZUMAB. [Suspect]
     Active Substance: PEMBROLIZUMAB
     Dosage: 10 MG/KG, Q2W
     Route: 042
     Dates: start: 20131011, end: 20131011
  14. LORAZEPAM. [Concomitant]
     Active Substance: LORAZEPAM
     Indication: ANXIETY
  15. GABAPENTIN. [Concomitant]
     Active Substance: GABAPENTIN
     Indication: PERIPHERAL SENSORY NEUROPATHY
     Dosage: 300 MG, BID
     Route: 048
     Dates: start: 20130404, end: 20140319
  16. ESTER-C [Concomitant]
     Active Substance: CALCIUM\VITAMINS
     Indication: ROUTINE HEALTH MAINTENANCE
     Dosage: 500 MG, QD
     Route: 048
     Dates: start: 20120323
  17. TYLENOL ARTHRITIS PAIN [Concomitant]
     Active Substance: ACETAMINOPHEN
     Indication: ARTHRITIS
     Dosage: 1300 MICROGRAM, BID
     Route: 048
     Dates: start: 20130221
  18. SODIUM CHLORIDE. [Concomitant]
     Active Substance: SODIUM CHLORIDE
     Indication: FLUSHING
  19. ALEVE [Concomitant]
     Active Substance: NAPROXEN SODIUM
     Indication: MYALGIA
     Dosage: 2 TABLETS, BID
     Route: 048
     Dates: start: 20131016, end: 20131028
  20. PEMBROLIZUMAB. [Suspect]
     Active Substance: PEMBROLIZUMAB
     Dosage: 10 MG/KG, Q2W
     Route: 042
     Dates: start: 20131127, end: 20140731
  21. ASPIRIN. [Concomitant]
     Active Substance: ASPIRIN
     Indication: ROUTINE HEALTH MAINTENANCE
     Dosage: 81 MICROGRAM, QD, FORMULATION: PILL
     Route: 048
     Dates: start: 20120323

REACTIONS (4)
  - Hypercalcaemia [Recovering/Resolving]
  - Myositis [Recovering/Resolving]
  - Histiocytosis haematophagic [Not Recovered/Not Resolved]
  - Sepsis [Fatal]

NARRATIVE: CASE EVENT DATE: 20131021
